FAERS Safety Report 11242820 (Version 2)
Quarter: 2015Q3

REPORT INFORMATION
  Report Type: Report from Study
  Country: GB (occurrence: GB)
  Receive Date: 20150707
  Receipt Date: 20150717
  Transmission Date: 20151125
  Serious: Yes (Hospitalization)
  Sender: FDA-Public Use
  Company Number: GB-GLAXOSMITHKLINE-GB2015GSK095575

PATIENT
  Age: 45 Year
  Sex: Female

DRUGS (27)
  1. PARACETAMOL [Concomitant]
     Active Substance: ACETAMINOPHEN
  2. CO-AMOXICLAV [Concomitant]
     Active Substance: AMOXICILLIN\CLAVULANIC ACID
  3. LANSOPRAZOLE. [Concomitant]
     Active Substance: LANSOPRAZOLE
  4. DEXAMETHASONE. [Concomitant]
     Active Substance: DEXAMETHASONE
  5. RAMIPRIL. [Concomitant]
     Active Substance: RAMIPRIL
  6. ORAMORPH [Concomitant]
     Active Substance: MORPHINE SULFATE
  7. MAGNESIUM SULFATE. [Concomitant]
     Active Substance: MAGNESIUM SULFATE
  8. FILGRASTIM [Concomitant]
     Active Substance: FILGRASTIM
  9. MORPHINE SULFATE. [Concomitant]
     Active Substance: MORPHINE SULFATE
  10. CEFTRIAXONE. [Concomitant]
     Active Substance: CEFTRIAXONE
  11. METOCLOPRAMIDE. [Concomitant]
     Active Substance: METOCLOPRAMIDE
  12. BENDROFLUMETHIAZIDE [Concomitant]
     Active Substance: BENDROFLUMETHIAZIDE
  13. LORAZEPAM. [Concomitant]
     Active Substance: LORAZEPAM
  14. CYCLIZINE [Concomitant]
     Active Substance: CYCLIZINE
  15. CODEINE PHOSPHATE [Concomitant]
     Active Substance: CODEINE PHOSPHATE
  16. PAZOPANIB [Suspect]
     Active Substance: PAZOPANIB
     Indication: OVARIAN CANCER
     Dosage: 600 MG, CYC
     Route: 048
     Dates: end: 20150627
  17. FOSBRETABULIN [Suspect]
     Active Substance: FOSBRETABULIN
     Indication: OVARIAN CANCER
     Dosage: 91.8 MG, CYC
     Route: 042
     Dates: end: 20150410
  18. STEROID NASAL SPRAY [Concomitant]
     Active Substance: UNSPECIFIED INGREDIENT
  19. AMLODIPINE [Concomitant]
     Active Substance: AMLODIPINE BESYLATE
  20. CALCICHEW D3 [Concomitant]
     Active Substance: CALCIUM\CHOLECALCIFEROL
  21. SANDO K [Concomitant]
  22. METRONIDAZOLE. [Concomitant]
     Active Substance: METRONIDAZOLE
  23. LEVOTHYROXINE. [Concomitant]
     Active Substance: LEVOTHYROXINE
  24. LEVOMEPROMAZINE [Concomitant]
     Active Substance: LEVOMEPROMAZINE
  25. TRIMETHOPRIM. [Concomitant]
     Active Substance: TRIMETHOPRIM
  26. LOPERAMIDE [Concomitant]
     Active Substance: LOPERAMIDE
  27. AUGMENTIN [Concomitant]
     Active Substance: AMOXICILLIN\CLAVULANATE POTASSIUM

REACTIONS (1)
  - Diarrhoea [Recovered/Resolved]

NARRATIVE: CASE EVENT DATE: 20150627
